FAERS Safety Report 9709055 (Version 1)
Quarter: 2013Q4

REPORT INFORMATION
  Report Type: Spontaneous
  Country: DK (occurrence: FR)
  Receive Date: 20131125
  Receipt Date: 20131125
  Transmission Date: 20140711
  Serious: Yes (Hospitalization)
  Sender: FDA-Public Use
  Company Number: FR-FRI-1000051738

PATIENT
  Age: 35 Year
  Sex: Female

DRUGS (12)
  1. CITALOPRAM [Suspect]
     Dosage: 10 MG
  2. PLAQUENIL [Interacting]
     Dosage: 400 MG
  3. CONTRAMAL [Interacting]
     Dosage: 300 MG
     Route: 048
  4. INEXIUM [Interacting]
     Dosage: 40 MG
     Route: 048
  5. PRADAXA [Concomitant]
     Indication: COAGULOPATHY
     Dosage: 2 DF
     Dates: start: 201202, end: 201305
  6. CORTANCYL [Concomitant]
     Dosage: 8 MG
  7. SPECIAFOLDINE [Concomitant]
     Dosage: 5 MG
  8. KEPPRA [Concomitant]
     Dosage: 500 MG
  9. LACMITAL [Concomitant]
     Dosage: 200 MG
  10. LUTERAN [Concomitant]
  11. DAFALGAN [Concomitant]
  12. LEXOMIL [Concomitant]

REACTIONS (3)
  - Diarrhoea [Not Recovered/Not Resolved]
  - Weight decreased [Not Recovered/Not Resolved]
  - Drug interaction [Not Recovered/Not Resolved]
